FAERS Safety Report 4337185-1 (Version None)
Quarter: 2004Q2

REPORT INFORMATION
  Report Type: 
  Country: None (occurrence: None)
  Receive Date: 20040408
  Receipt Date: 20040326
  Transmission Date: 20050107
  Serious: Yes (Other)
  Sender: FDA-Public Use
  Company Number: FRWYE637612MAR04

PATIENT
  Age: 65 Year
  Sex: Female

DRUGS (2)
  1. EFFEXOR [Suspect]
     Indication: DEPRESSION
     Dosage: 75 MG 2 X PER 1 DAY ORAL
     Route: 048
     Dates: start: 20031217, end: 20040225
  2. PRAZEPAM [Concomitant]

REACTIONS (4)
  - BLOOD PRESSURE SYSTOLIC INCREASED [None]
  - SUPRAVENTRICULAR EXTRASYSTOLES [None]
  - SYNCOPE VASOVAGAL [None]
  - VENTRICULAR EXTRASYSTOLES [None]
